FAERS Safety Report 7088597-7 (Version None)
Quarter: 2010Q4

REPORT INFORMATION
  Report Type: 
  Country: None (occurrence: None)
  Receive Date: 20101108
  Receipt Date: 20101102
  Transmission Date: 20110411
  Serious: Yes (Death, Other)
  Sender: FDA-Public Use
  Company Number: SK-CELGENEUS-260-50794-10102802

PATIENT
  Age: 54 Year
  Sex: Male

DRUGS (5)
  1. VIDAZA [Suspect]
     Indication: MYELODYSPLASTIC SYNDROME
     Route: 050
  2. WHOLE BLOOD [Concomitant]
     Route: 065
  3. ANOPYRIN [Concomitant]
     Route: 065
  4. DIABETES [Concomitant]
     Route: 065
  5. ANTIHYPERTENSIVES [Concomitant]
     Indication: HYPERTENSION
     Route: 065

REACTIONS (2)
  - DEEP VEIN THROMBOSIS [None]
  - NEOPLASM MALIGNANT [None]
